FAERS Safety Report 7084153-5 (Version None)
Quarter: 2010Q4

REPORT INFORMATION
  Report Type: 
  Country: None (occurrence: None)
  Receive Date: 20101104
  Receipt Date: 20101021
  Transmission Date: 20110411
  Serious: Yes (Other)
  Sender: FDA-Public Use
  Company Number: IT-AMGEN-ITASP2010000779

PATIENT

DRUGS (8)
  1. ENBREL [Suspect]
     Indication: PSORIASIS
     Route: 058
     Dates: start: 20090310, end: 20090422
  2. ALLOPURINOL [Concomitant]
     Dosage: 50 MG
     Route: 048
  3. EOLUS [Concomitant]
     Dosage: 1 DOSE
     Route: 055
  4. OLMESARTAN MEDOXOMIL [Concomitant]
     Dosage: 1 DOSE
     Route: 048
  5. TRIATEC [Concomitant]
     Dosage: 10 MG
     Route: 048
  6. CARDIOASPIRIN [Concomitant]
     Dosage: 100 MG
     Route: 048
  7. AMLODIPINE [Concomitant]
     Dosage: 5 MG
     Route: 048
  8. DIAMICRON [Concomitant]
     Dosage: 30 MG
     Route: 048

REACTIONS (4)
  - ALANINE AMINOTRANSFERASE INCREASED [None]
  - ASPARTATE AMINOTRANSFERASE INCREASED [None]
  - BLOOD BILIRUBIN INCREASED [None]
  - GAMMA-GLUTAMYLTRANSFERASE INCREASED [None]
